FAERS Safety Report 7312249-9 (Version None)
Quarter: 2011Q1

REPORT INFORMATION
  Report Type: 
  Country: None (occurrence: None)
  Receive Date: 20110224
  Receipt Date: 20110218
  Transmission Date: 20110831
  Serious: Yes (Life-Threatening, Hospitalization, Other)
  Sender: FDA-Public Use
  Company Number: A0914458A

PATIENT

DRUGS (1)
  1. VOTRIENT [Suspect]
     Route: 048
     Dates: start: 20101101, end: 20110201

REACTIONS (4)
  - HEPATIC ENZYME INCREASED [None]
  - BLOOD BILIRUBIN INCREASED [None]
  - HEPATITIS [None]
  - PYREXIA [None]
